FAERS Safety Report 6978442-X (Version None)
Quarter: 2010Q3

REPORT INFORMATION
  Report Type: 
  Country: None (occurrence: None)
  Receive Date: 20100913
  Receipt Date: 20100903
  Transmission Date: 20110219
  Serious: Yes (Other)
  Sender: FDA-Public Use
  Company Number: US-SANOFI-AVENTIS-2010SA054145

PATIENT
  Age: 79 Year
  Sex: Male

DRUGS (5)
  1. UROXATRAL [Suspect]
     Indication: BENIGN PROSTATIC HYPERPLASIA
     Route: 048
     Dates: start: 20070101, end: 20100801
  2. UROXATRAL [Suspect]
     Route: 048
     Dates: start: 20100801
  3. MULTI-VITAMINS [Concomitant]
  4. ASPIRIN [Concomitant]
  5. COZAAR [Concomitant]
     Dates: end: 20100903

REACTIONS (3)
  - BLOOD PRESSURE INCREASED [None]
  - PROSTATE CANCER [None]
  - URINARY RETENTION [None]
